FAERS Safety Report 8583827-4 (Version None)
Quarter: 2012Q3

REPORT INFORMATION
  Report Type: 
  Country: None (occurrence: None)
  Receive Date: 20120810
  Receipt Date: 20120731
  Transmission Date: 20120928
  Serious: Yes (Hospitalization, Disabling, Other)
  Sender: FDA-Public Use
  Company Number: US-009507513-1102USA02268

PATIENT

DRUGS (11)
  1. FOSAMAX [Suspect]
     Indication: OSTEOPOROSIS
     Dosage: 70 MG, UNK
     Route: 048
     Dates: start: 20040923, end: 20090101
  2. FOSAMAX [Suspect]
     Indication: OSTEOPENIA
     Dosage: 35 MG, QW
     Route: 048
     Dates: start: 20030415, end: 20040617
  3. FOSAMAX PLUS D [Suspect]
     Indication: OSTEOPENIA
     Dosage: UNK UNK, QW
     Route: 048
     Dates: start: 20060427, end: 20081218
  4. MK-9278 [Concomitant]
     Dosage: UNK UNK, QD
  5. ASCORBIC ACID [Concomitant]
     Dosage: 500 MG, QD
  6. FOSAMAX PLUS D [Suspect]
     Dosage: 70MG/2800
     Route: 048
     Dates: start: 20080424
  7. PREMPRO [Concomitant]
     Dosage: UNK UNK, QD
     Dates: start: 20000309
  8. VITAMIN E [Concomitant]
     Dosage: 400 U, QD
  9. ACTONEL [Suspect]
     Indication: OSTEOPENIA
     Dosage: 30 MG, UNK
     Dates: start: 20010701, end: 20030701
  10. FOSAMAX PLUS D [Suspect]
     Indication: OSTEOPOROSIS
     Dosage: 70MG/5600
     Route: 048
     Dates: start: 20070529, end: 20090224
  11. CALCIUM (UNSPECIFIED) [Concomitant]
     Dosage: UNK UNK, QD

REACTIONS (30)
  - BREAST PAIN [None]
  - HYPOAESTHESIA [None]
  - HEADACHE [None]
  - TOOTH DISORDER [None]
  - BURSITIS [None]
  - OEDEMA PERIPHERAL [None]
  - HYPERCHOLESTEROLAEMIA [None]
  - PAIN IN EXTREMITY [None]
  - HELICOBACTER TEST POSITIVE [None]
  - ROTATOR CUFF SYNDROME [None]
  - GASTRITIS [None]
  - FEMUR FRACTURE [None]
  - ROAD TRAFFIC ACCIDENT [None]
  - INJURY [None]
  - PIRIFORMIS SYNDROME [None]
  - DYSPEPSIA [None]
  - ARTHRALGIA [None]
  - BACK PAIN [None]
  - RIB FRACTURE [None]
  - CARPAL TUNNEL SYNDROME [None]
  - PATHOLOGICAL FRACTURE [None]
  - FALL [None]
  - COUGH [None]
  - CERVICOBRACHIAL SYNDROME [None]
  - ADVERSE DRUG REACTION [None]
  - ASTHENIA [None]
  - INSOMNIA [None]
  - PERIARTHRITIS [None]
  - INTERVERTEBRAL DISC DEGENERATION [None]
  - NECK PAIN [None]
